FAERS Safety Report 13472279 (Version 3)
Quarter: 2017Q3

REPORT INFORMATION
  Report Type: Spontaneous
  Country: JP (occurrence: JP)
  Receive Date: 20170424
  Receipt Date: 20170705
  Transmission Date: 20171127
  Serious: Yes (Other)
  Sender: FDA-Public Use
  Company Number: JP-GLAXOSMITHKLINE-JP2017JPN049660

PATIENT
  Age: 80 Year
  Sex: Male
  Weight: 55 kg

DRUGS (12)
  1. VALTREX [Suspect]
     Active Substance: VALACYCLOVIR HYDROCHLORIDE
     Indication: HERPES ZOSTER
     Dosage: 250 MG, QD
     Route: 048
     Dates: start: 20170404, end: 20170405
  2. NIFEDIPINE. [Concomitant]
     Active Substance: NIFEDIPINE
     Dosage: UNK
  3. MARIZEV [Concomitant]
     Dosage: UNK
  4. LAXOBERON SOLUTION [Concomitant]
     Dosage: UNK
  5. TRESIBA [Concomitant]
     Active Substance: INSULIN DEGLUDEC
     Dosage: UNK
  6. AMLODIPINE BESILATE [Concomitant]
     Active Substance: AMLODIPINE BESYLATE
     Dosage: UNK
  7. ETIZOLAM TABLETS [Concomitant]
     Dosage: UNK
  8. LACTULOSE SYRUP [Concomitant]
     Dosage: UNK
  9. SENNOSIDE TABLETS [Concomitant]
     Dosage: UNK
  10. FAMOTIDINE OD TABLETS [Concomitant]
     Dosage: UNK
  11. LORAZEPAM. [Concomitant]
     Active Substance: LORAZEPAM
     Dosage: UNK
  12. REMITCH [Concomitant]
     Active Substance: NALFURAFINE HYDROCHLORIDE
     Dosage: UNK

REACTIONS (6)
  - Logorrhoea [Recovered/Resolved]
  - Delirium [Recovered/Resolved]
  - Toxic encephalopathy [Recovering/Resolving]
  - Restlessness [Unknown]
  - Agitation [Recovering/Resolving]
  - Soliloquy [Unknown]

NARRATIVE: CASE EVENT DATE: 20170406
